FAERS Safety Report 26193938 (Version 1)
Quarter: 2025Q4

REPORT INFORMATION
  Report Type: Report from Study
  Country: US (occurrence: US)
  Receive Date: 20251224
  Receipt Date: 20251224
  Transmission Date: 20260118
  Serious: No
  Sender: TELIX PHARMACEUTICALS
  Company Number: US-TLX-2024000221

PATIENT
  Age: 73 Year
  Sex: Male
  Weight: 82.2 kg

DRUGS (10)
  1. ILLUCCIX [Suspect]
     Active Substance: GALLIUM GA-68 GOZETOTIDE
     Indication: Diagnostic procedure
     Dosage: 1.8 MCI/UG
     Route: 040
     Dates: start: 20240415, end: 20240415
  2. GALLIUM GA-68 GOZETOTIDE [Suspect]
     Active Substance: GALLIUM GA-68 GOZETOTIDE
     Indication: Diagnostic procedure
     Dosage: 8 MCI/UG
     Route: 042
     Dates: start: 20240417, end: 20240417
  3. Valstartan-hydrochlorothiazide [Concomitant]
     Indication: Hypertension
     Route: 048
     Dates: start: 2020
  4. ROSUVASTATIN [Concomitant]
     Active Substance: ROSUVASTATIN
     Indication: Hyperlipidaemia
     Route: 048
     Dates: start: 2024
  5. VITAMIN C [Concomitant]
     Active Substance: ASCORBIC ACID
     Indication: Vitamin supplementation
     Route: 048
     Dates: start: 2014
  6. VITAMIN D3 [Concomitant]
     Active Substance: CHOLECALCIFEROL
     Indication: Vitamin supplementation
     Route: 048
     Dates: start: 2014
  7. VITAMIN B12 [Concomitant]
     Active Substance: CYANOCOBALAMIN
     Indication: Vitamin supplementation
     Route: 048
     Dates: start: 2014
  8. ZINC [Concomitant]
     Active Substance: ZINC
     Indication: Mineral supplementation
     Route: 048
     Dates: start: 2014
  9. Vitamin B complex with vitamin C (unknown generic formula) [Concomitant]
     Indication: Vitamin supplementation
     Route: 048
     Dates: start: 2014
  10. VITAMINS [Concomitant]
     Active Substance: VITAMINS
     Indication: Vitamin supplementation
     Route: 048
     Dates: start: 2024

REACTIONS (1)
  - Diarrhoea [Recovered/Resolved]

NARRATIVE: CASE EVENT DATE: 20240416
